FAERS Safety Report 13402633 (Version 6)
Quarter: 2018Q1

REPORT INFORMATION
  Report Type: Report from Study
  Country: CA (occurrence: CA)
  Receive Date: 20170404
  Receipt Date: 20180220
  Transmission Date: 20180508
  Serious: Yes (Hospitalization)
  Sender: FDA-Public Use
  Company Number: CA-ACTELION-A-US2017-151819

PATIENT
  Age: 61 Year
  Sex: Female
  Weight: 91.61 kg

DRUGS (16)
  1. IMODIUM [Concomitant]
     Active Substance: LOPERAMIDE HYDROCHLORIDE
  2. MAXERAN [Concomitant]
     Active Substance: METOCLOPRAMIDE HYDROCHLORIDE
  3. LIPITOR [Concomitant]
     Active Substance: ATORVASTATIN CALCIUM
  4. ONDANSETRON [Concomitant]
     Active Substance: ONDANSETRON
  5. REVATIO [Concomitant]
     Active Substance: SILDENAFIL CITRATE
  6. PANTOLOC [Concomitant]
     Active Substance: PANTOPRAZOLE SODIUM
  7. LASIX [Concomitant]
     Active Substance: FUROSEMIDE
  8. ACTONEL [Concomitant]
     Active Substance: RISEDRONATE SODIUM
  9. EZETROL [Concomitant]
     Active Substance: EZETIMIBE
  10. CHOLECALCIFEROL [Concomitant]
     Active Substance: CHOLECALCIFEROL
  11. WARFARIN [Concomitant]
     Active Substance: WARFARIN
  12. SERTRALINE [Concomitant]
     Active Substance: SERTRALINE HYDROCHLORIDE
  13. CARIPUL [Suspect]
     Active Substance: EPOPROSTENOL
     Indication: PULMONARY ARTERIAL HYPERTENSION
     Dosage: UNK
     Route: 042
     Dates: start: 20150406
  14. OPSUMIT [Suspect]
     Active Substance: MACITENTAN
     Indication: PULMONARY ARTERIAL HYPERTENSION
     Dosage: 10 MG, QD
     Route: 048
     Dates: start: 20141015
  15. PLAQUENIL [Concomitant]
     Active Substance: HYDROXYCHLOROQUINE SULFATE
  16. MIRAPEX [Concomitant]
     Active Substance: PRAMIPEXOLE DIHYDROCHLORIDE

REACTIONS (8)
  - Compression fracture [Not Recovered/Not Resolved]
  - Device occlusion [Recovered/Resolved]
  - Muscle spasms [Not Recovered/Not Resolved]
  - Spinal fracture [Not Recovered/Not Resolved]
  - Pain [Not Recovered/Not Resolved]
  - Device related infection [Not Recovered/Not Resolved]
  - Pneumonia [Not Recovered/Not Resolved]
  - Nausea [Not Recovered/Not Resolved]

NARRATIVE: CASE EVENT DATE: 20170525
